FAERS Safety Report 10541941 (Version 1)
Quarter: 2014Q4

REPORT INFORMATION
  Report Type: Spontaneous
  Country: DE (occurrence: DE)
  Receive Date: 20141024
  Receipt Date: 20141024
  Transmission Date: 20150529
  Serious: Yes (Other)
  Sender: FDA-Public Use
  Company Number: DE-PFIZER INC-2014290376

PATIENT
  Age: 25 Year
  Sex: Female

DRUGS (1)
  1. TRIGOA [Suspect]
     Active Substance: ETHINYL ESTRADIOL\LEVONORGESTREL
     Dosage: UNK

REACTIONS (1)
  - Ligament rupture [Unknown]
